FAERS Safety Report 7338270-2 (Version None)
Quarter: 2011Q1

REPORT INFORMATION
  Report Type: 
  Country: None (occurrence: None)
  Receive Date: 20110308
  Receipt Date: 20110303
  Transmission Date: 20110831
  Serious: Yes (Other)
  Sender: FDA-Public Use
  Company Number: BE-PFIZER INC-2011048931

PATIENT
  Age: 74 Year
  Sex: Male

DRUGS (8)
  1. ASAFLOW [Concomitant]
     Dosage: 80 MG, 1X/DAY
  2. COZAAR [Concomitant]
     Dosage: 50 MG, 1X/DAY
  3. PLAVIX [Concomitant]
     Dosage: 75 MG, 1X/DAY
  4. BISOPROLOL [Concomitant]
     Dosage: 10 MG, 1X/DAY
  5. LIPITOR [Concomitant]
     Dosage: 80 MG, 1X/DAY
  6. AMLOR [Suspect]
     Indication: HYPERTENSION
     Dosage: 5 MG, 1X/DAY
     Route: 048
  7. PANTOPRAZOLE [Concomitant]
     Dosage: 40 MG, 1X/DAY
  8. METFORMAX [Concomitant]
     Dosage: 850 MG, 1X/DAY

REACTIONS (1)
  - ELECTROCARDIOGRAM T WAVE INVERSION [None]
